FAERS Safety Report 21958569 (Version 5)
Quarter: 2023Q1

REPORT INFORMATION
  Report Type: Spontaneous
  Country: CN (occurrence: CN)
  Receive Date: 20230206
  Receipt Date: 20230228
  Transmission Date: 20230417
  Serious: Yes (Hospitalization)
  Sender: FDA-Public Use
  Company Number: CN-ELI_LILLY_AND_COMPANY-CN202301008920

PATIENT
  Age: 58 Year
  Sex: Female
  Weight: 70 kg

DRUGS (8)
  1. HUMALOG MIX75/25 [Suspect]
     Active Substance: INSULIN LISPRO
     Indication: Diabetes mellitus
     Dosage: 10 U, EACH MORNING
     Route: 058
     Dates: start: 2018
  2. HUMALOG MIX75/25 [Suspect]
     Active Substance: INSULIN LISPRO
     Dosage: 6 U, EACH EVENING
     Route: 058
     Dates: start: 2018
  3. HUMALOG MIX75/25 [Suspect]
     Active Substance: INSULIN LISPRO
     Dosage: 11 U, UNKNOWN
     Route: 058
  4. HUMALOG MIX75/25 [Suspect]
     Active Substance: INSULIN LISPRO
     Dosage: 12 U, UNKNOWN
     Route: 058
  5. HUMALOG MIX75/25 [Suspect]
     Active Substance: INSULIN LISPRO
     Dosage: 10 U, BID
     Route: 058
  6. HUMALOG MIX75/25 [Suspect]
     Active Substance: INSULIN LISPRO
     Dosage: 15 U, EACH MORNING
     Route: 058
  7. HUMALOG MIX75/25 [Suspect]
     Active Substance: INSULIN LISPRO
     Dosage: 8 U, EACH EVENING
     Route: 058
  8. HUMALOG MIX75/25 [Suspect]
     Active Substance: INSULIN LISPRO
     Dosage: 15 U, UNKNOWN
     Route: 058
     Dates: start: 202212

REACTIONS (16)
  - Blood glucose increased [Unknown]
  - Confusional state [Unknown]
  - Gallbladder disorder [Unknown]
  - Pyrexia [Unknown]
  - Blood glucose increased [Unknown]
  - Lethargy [Unknown]
  - Dizziness [Unknown]
  - Cerebral disorder [Unknown]
  - Fall [Unknown]
  - Gait disturbance [Unknown]
  - Vocal cord disorder [Unknown]
  - Limb discomfort [Unknown]
  - Mobility decreased [Unknown]
  - Wrong technique in product usage process [Unknown]
  - Headache [Unknown]
  - Lower limb fracture [Unknown]

NARRATIVE: CASE EVENT DATE: 20180101
